FAERS Safety Report 15027424 (Version 1)
Quarter: 2018Q2

REPORT INFORMATION
  Report Type: Report from Study
  Country: US (occurrence: US)
  Receive Date: 20180619
  Receipt Date: 20180619
  Transmission Date: 20180711
  Serious: Yes (Other)
  Sender: FDA-Public Use
  Company Number: US-BIOGEN-2018BI00594636

PATIENT
  Sex: Female

DRUGS (2)
  1. TECFIDERA [Suspect]
     Active Substance: DIMETHYL FUMARATE
     Indication: MULTIPLE SCLEROSIS
     Dosage: TOOK FOR A YEAR AND A HALF, THEN WAS OFF FOR A MONTH, AND RESTARTED ON 03 JAN 2018
     Route: 048
     Dates: start: 20180103
  2. TECFIDERA [Suspect]
     Active Substance: DIMETHYL FUMARATE
     Dosage: TOOK FOR A YEAR AND A HALF, THEN WAS OFF FOR A MONTH, AND RESTARTED ON 03 JAN 2018
     Route: 065
     Dates: end: 201712

REACTIONS (1)
  - Cardiac failure [Unknown]

NARRATIVE: CASE EVENT DATE: 2018
